FAERS Safety Report 14626640 (Version 1)
Quarter: 2018Q1

REPORT INFORMATION
  Report Type: Spontaneous
  Country: IT (occurrence: IT)
  Receive Date: 20180312
  Receipt Date: 20180312
  Transmission Date: 20180509
  Serious: Yes (Other)
  Sender: FDA-Public Use
  Company Number: IT-BAYER-2018-045959

PATIENT
  Age: 19 Year
  Sex: Male

DRUGS (1)
  1. CARDIOASPIRIN 100 MG [Suspect]
     Active Substance: ASPIRIN
     Indication: PRODUCT USED FOR UNKNOWN INDICATION
     Dosage: 2 DF, IN TOTAL
     Route: 048
     Dates: start: 20171111, end: 20171111

REACTIONS (3)
  - Peptic ulcer [Unknown]
  - Melaena [Unknown]
  - Medication error [Unknown]

NARRATIVE: CASE EVENT DATE: 20171112
